FAERS Safety Report 9958986 (Version 1)
Quarter: 2014Q1

REPORT INFORMATION
  Report Type: Report from Study
  Country: US (occurrence: US)
  Receive Date: 20140305
  Receipt Date: 20140305
  Transmission Date: 20141002
  Serious: No
  Sender: FDA-Public Use
  Company Number: US-ABBVIE-13P-163-1104400-00

PATIENT
  Age: 74 Year
  Sex: Female

DRUGS (30)
  1. HUMIRA [Suspect]
     Indication: PSORIATIC ARTHROPATHY
     Dates: end: 201304
  2. AMLODIPINE [Concomitant]
     Indication: PRODUCT USED FOR UNKNOWN INDICATION
  3. BENAZEPRIL [Concomitant]
     Indication: HYPERTENSION
  4. GENERIC LASIX [Concomitant]
     Indication: PRODUCT USED FOR UNKNOWN INDICATION
  5. TRIAMTERENE/HCTZ [Concomitant]
     Indication: PRODUCT USED FOR UNKNOWN INDICATION
     Dosage: 75MG/50MG
  6. POTASSIUM CHLORIDE [Concomitant]
     Indication: FLUID RETENTION
  7. METFORMIN [Concomitant]
     Indication: PRODUCT USED FOR UNKNOWN INDICATION
  8. OMEPRAZOLE [Concomitant]
     Indication: PRODUCT USED FOR UNKNOWN INDICATION
  9. CRESTOR [Concomitant]
     Indication: PRODUCT USED FOR UNKNOWN INDICATION
  10. ALBUTEROL [Concomitant]
     Indication: TOBACCO USER
  11. BABY ASPIRIN [Concomitant]
     Indication: PRODUCT USED FOR UNKNOWN INDICATION
     Dosage: EXCEPT PRE-OPERATIVELY
  12. ASCORBIC ACID [Concomitant]
     Indication: PRODUCT USED FOR UNKNOWN INDICATION
  13. CARBONATE VITAMIN D3 [Concomitant]
     Indication: PRODUCT USED FOR UNKNOWN INDICATION
     Dosage: 2 A DAY
  14. FLONASE [Concomitant]
     Indication: PRODUCT USED FOR UNKNOWN INDICATION
  15. FOLIC ACID [Concomitant]
     Indication: PRODUCT USED FOR UNKNOWN INDICATION
     Dosage: 2 A DAY
  16. MELOXICAM [Concomitant]
     Indication: PRODUCT USED FOR UNKNOWN INDICATION
  17. MICONAZOLE NITRATE [Concomitant]
     Indication: PRODUCT USED FOR UNKNOWN INDICATION
  18. NYSTATIN [Concomitant]
     Indication: HYPERHIDROSIS
  19. MULTIVITAMIN [Concomitant]
     Indication: PRODUCT USED FOR UNKNOWN INDICATION
  20. NEOSPORIN [Concomitant]
     Indication: ANALGESIC THERAPY
  21. GABAPENTIN [Concomitant]
     Indication: NERVE COMPRESSION
  22. LEVOTHYROXINE [Concomitant]
     Indication: PRODUCT USED FOR UNKNOWN INDICATION
  23. SERTRALINE [Concomitant]
     Indication: PRODUCT USED FOR UNKNOWN INDICATION
  24. LORAZEPAM [Concomitant]
     Indication: PRODUCT USED FOR UNKNOWN INDICATION
  25. AMBIEN [Concomitant]
     Indication: DEPRESSION
     Dosage: 10MG DAILY
  26. AMBIEN [Concomitant]
     Indication: ANXIETY
  27. METHOTREXATE [Concomitant]
     Indication: PRODUCT USED FOR UNKNOWN INDICATION
     Dosage: EVERY TUESDAY
  28. METHADONE [Concomitant]
     Indication: PRODUCT USED FOR UNKNOWN INDICATION
  29. HYDROCODONE [Concomitant]
     Indication: PAIN
  30. C-PAP MACHINE [Concomitant]
     Indication: SLEEP APNOEA SYNDROME

REACTIONS (1)
  - Urinary tract infection [Recovered/Resolved]
